FAERS Safety Report 22536798 (Version 1)
Quarter: 2023Q2

REPORT INFORMATION
  Report Type: Report from Study
  Country: US (occurrence: US)
  Receive Date: 20230608
  Receipt Date: 20230608
  Transmission Date: 20230721
  Serious: Yes (Death, Hospitalization, Other)
  Sender: FDA-Public Use
  Company Number: US-ABBVIE-5281050

PATIENT
  Age: 79 Year
  Sex: Female
  Weight: 24.947 kg

DRUGS (2)
  1. HUMIRA [Suspect]
     Active Substance: ADALIMUMAB
     Indication: Colitis ulcerative
     Dosage: START DATE TEXT: SINCE IT CAME OUT
     Route: 058
     Dates: end: 2023
  2. ELIQUIS [Concomitant]
     Active Substance: APIXABAN
     Indication: Anticoagulant therapy

REACTIONS (7)
  - Ischaemic cerebral infarction [Fatal]
  - Coma [Unknown]
  - Cerebrovascular accident [Recovered/Resolved]
  - Weight decreased [Not Recovered/Not Resolved]
  - Amnesia [Not Recovered/Not Resolved]
  - Hemiplegia [Recovered/Resolved]
  - Dementia [Not Recovered/Not Resolved]

NARRATIVE: CASE EVENT DATE: 20201101
